FAERS Safety Report 6181973-6 (Version None)
Quarter: 2009Q2

REPORT INFORMATION
  Report Type: 
  Country: None (occurrence: None)
  Receive Date: 20090505
  Receipt Date: 20090421
  Transmission Date: 20091009
  Serious: Yes (Other)
  Sender: FDA-Public Use
  Company Number: 230264K08USA

PATIENT
  Age: 35 Year
  Sex: Female
  Weight: 48 kg

DRUGS (3)
  1. REBIF [Suspect]
     Indication: MULTIPLE SCLEROSIS
     Dosage: 44 MCG, 3 IN 1 WEEKS, SUBCUTANEOUS
     Route: 058
     Dates: start: 20071112
  2. TYLENOL (COTYLENOL) [Concomitant]
  3. ZYRTEC [Concomitant]

REACTIONS (4)
  - COLLAPSE OF LUNG [None]
  - METASTASES TO BONE [None]
  - METASTASES TO LUNG [None]
  - MUSCULOSKELETAL DISCOMFORT [None]
